FAERS Safety Report 21556114 (Version 3)
Quarter: 2023Q1

REPORT INFORMATION
  Report Type: Report from Study
  Country: US (occurrence: US)
  Receive Date: 20221104
  Receipt Date: 20230217
  Transmission Date: 20230418
  Serious: Yes (Hospitalization)
  Sender: FDA-Public Use
  Company Number: US-JNJFOC-20221041224

PATIENT
  Age: 62 Year
  Sex: Male
  Weight: 50.3 kg

DRUGS (39)
  1. TECLISTAMAB [Suspect]
     Active Substance: TECLISTAMAB
     Indication: Plasma cell myeloma
     Route: 058
     Dates: start: 20220907, end: 20221004
  2. DARATUMUMAB [Suspect]
     Active Substance: DARATUMUMAB
     Indication: Plasma cell myeloma
     Route: 058
     Dates: start: 20220906, end: 20221004
  3. LENALIDOMIDE [Suspect]
     Active Substance: LENALIDOMIDE
     Indication: Plasma cell myeloma
     Route: 065
  4. TESSALON [Concomitant]
     Active Substance: BENZONATATE
     Indication: Seasonal allergy
     Route: 048
     Dates: start: 20220117
  5. SIMVASTATIN [Concomitant]
     Active Substance: SIMVASTATIN
     Indication: Blood cholesterol increased
     Route: 048
     Dates: start: 20171008
  6. PANTOPRAZOLE [Concomitant]
     Active Substance: PANTOPRAZOLE
     Indication: Gastrooesophageal reflux disease
     Route: 048
     Dates: start: 20171008
  7. FLONASE [Concomitant]
     Active Substance: FLUTICASONE PROPIONATE
     Indication: Seasonal allergy
     Route: 055
     Dates: start: 20180215
  8. ACETAMINOPHEN\HYDROCODONE [Concomitant]
     Active Substance: ACETAMINOPHEN\HYDROCODONE
     Indication: Pain
     Dosage: 325-5
     Route: 048
     Dates: start: 20220421
  9. AMLODIPINE [Concomitant]
     Active Substance: AMLODIPINE BESYLATE
     Indication: Hypertension
     Route: 048
     Dates: start: 20220502
  10. METOPROLOL [Concomitant]
     Active Substance: METOPROLOL
     Indication: Hypertension
     Route: 048
     Dates: start: 20220601
  11. OXYCODONE [Concomitant]
     Active Substance: OXYCODONE
     Indication: Tooth abscess
     Route: 048
     Dates: start: 20220912
  12. OXYCODONE [Concomitant]
     Active Substance: OXYCODONE
     Indication: Pain
     Route: 048
     Dates: start: 20221101
  13. CHERACOL [CODEINE PHOSPHATE;GUAIFENESIN] [Concomitant]
     Indication: Upper respiratory tract infection
     Route: 048
     Dates: start: 20221011
  14. AZITHROMYCIN [Concomitant]
     Active Substance: AZITHROMYCIN
     Indication: Upper respiratory tract infection
     Route: 048
     Dates: start: 20221011, end: 20221015
  15. POTASSIUM CHLORIDE [Concomitant]
     Active Substance: POTASSIUM CHLORIDE
     Indication: Hypokalaemia
     Route: 042
     Dates: start: 20221018, end: 20221018
  16. POTASSIUM CHLORIDE [Concomitant]
     Active Substance: POTASSIUM CHLORIDE
     Route: 048
     Dates: start: 20221108
  17. SODIUM CHLORIDE [Concomitant]
     Active Substance: SODIUM CHLORIDE
     Indication: Upper respiratory tract infection
     Route: 042
     Dates: start: 20221018, end: 20221018
  18. TRAMADOL [Concomitant]
     Active Substance: TRAMADOL
     Indication: Pain
     Route: 048
     Dates: start: 20220106
  19. ALBUTEROL [Concomitant]
     Active Substance: ALBUTEROL
     Indication: Seasonal allergy
     Route: 055
     Dates: start: 20220527
  20. ZOFRAN [Concomitant]
     Active Substance: ONDANSETRON HYDROCHLORIDE
     Indication: Prophylaxis of nausea and vomiting
     Route: 048
     Dates: start: 20221004
  21. BACTRIM DS [Concomitant]
     Active Substance: SULFAMETHOXAZOLE\TRIMETHOPRIM
     Indication: Prophylaxis
     Dosage: 800/160MG
     Route: 048
     Dates: start: 20221005
  22. FLUCONAZOLE [Concomitant]
     Active Substance: FLUCONAZOLE
     Indication: Candida infection
  23. FLUCONAZOLE [Concomitant]
     Active Substance: FLUCONAZOLE
     Indication: Stomatitis
  24. DIPHENHYDRAMINE HYDROCHLORIDE\LIDOCAINE HYDROCHLORIDE\NYSTATIN [Concomitant]
     Active Substance: DIPHENHYDRAMINE HYDROCHLORIDE\LIDOCAINE HYDROCHLORIDE\NYSTATIN
     Indication: Candida infection
     Route: 048
     Dates: start: 20221025, end: 20221025
  25. DIPHENHYDRAMINE HYDROCHLORIDE\LIDOCAINE HYDROCHLORIDE\NYSTATIN [Concomitant]
     Active Substance: DIPHENHYDRAMINE HYDROCHLORIDE\LIDOCAINE HYDROCHLORIDE\NYSTATIN
     Indication: Stomatitis
     Route: 048
     Dates: start: 20221104
  26. MICAFUNGIN [Concomitant]
     Active Substance: MICAFUNGIN
     Indication: Candida infection
     Route: 048
     Dates: start: 20221028, end: 20221031
  27. ALLOPURINOL [Concomitant]
     Active Substance: ALLOPURINOL
     Indication: Hyperuricaemia
     Route: 048
     Dates: start: 20221030
  28. ASPIRIN [Concomitant]
     Active Substance: ASPIRIN
     Indication: Cardiovascular event prophylaxis
     Route: 048
     Dates: start: 20221104
  29. BENADRYL [Concomitant]
     Active Substance: DIPHENHYDRAMINE HYDROCHLORIDE
     Indication: Candida infection
     Route: 048
     Dates: start: 20221104, end: 20221114
  30. BENADRYL [Concomitant]
     Active Substance: DIPHENHYDRAMINE HYDROCHLORIDE
     Indication: Stomatitis
     Route: 048
     Dates: start: 20221214
  31. XALATAN [Concomitant]
     Active Substance: LATANOPROST
     Indication: Glaucoma
     Route: 047
     Dates: start: 20221109
  32. INFLUENZA VIRUS VACCINE [Concomitant]
     Active Substance: INFLUENZA VIRUS VACCINE
     Indication: Antiviral prophylaxis
     Route: 030
     Dates: start: 20221114, end: 20221114
  33. DICLOFENAC [Concomitant]
     Active Substance: DICLOFENAC
     Indication: Pain in extremity
     Route: 061
     Dates: start: 20221115
  34. LEVOFLOXACIN [Concomitant]
     Active Substance: LEVOFLOXACIN
     Indication: Upper respiratory tract infection
     Route: 048
     Dates: start: 20221129
  35. VALACYCLOVIR [Concomitant]
     Active Substance: VALACYCLOVIR HYDROCHLORIDE
     Indication: Antiviral prophylaxis
     Route: 048
     Dates: start: 20221201
  36. TYLENOL [Concomitant]
     Active Substance: ACETAMINOPHEN
     Indication: Premedication
     Route: 048
     Dates: start: 20221214
  37. AQUAPHOR [WHITE SOFT PARAFFIN] [Concomitant]
     Indication: Rash maculo-papular
     Dosage: DOSE: 1 (DOSE UNITS NOT PROVIDED)
     Route: 061
     Dates: start: 20230112
  38. KENALOG [Concomitant]
     Active Substance: TRIAMCINOLONE ACETONIDE
     Indication: Rash maculo-papular
     Route: 061
     Dates: start: 20230118
  39. K PHOS NEUTRAL [Concomitant]
     Active Substance: POTASSIUM PHOSPHATE, MONOBASIC\SODIUM PHOSPHATE, DIBASIC, ANHYDROUS\SODIUM PHOSPHATE, MONOBASIC, MON
     Indication: Hypophosphataemia
     Route: 048
     Dates: start: 20230118

REACTIONS (5)
  - Febrile neutropenia [Recovered/Resolved]
  - Infection [Not Recovered/Not Resolved]
  - Cytomegalovirus infection reactivation [Not Recovered/Not Resolved]
  - Tonsillitis [Recovered/Resolved]
  - Oesophagitis [Recovered/Resolved]

NARRATIVE: CASE EVENT DATE: 20221019
